FAERS Safety Report 24405499 (Version 1)
Quarter: 2024Q4

REPORT INFORMATION
  Report Type: Spontaneous
  Country: ES (occurrence: ES)
  Receive Date: 20241007
  Receipt Date: 20241007
  Transmission Date: 20250115
  Serious: Yes (Other)
  Sender: PURACAP
  Company Number: ES-PURACAP-ES-2024EPCLIT01178

PATIENT
  Age: 69 Year
  Sex: Male

DRUGS (2)
  1. ALLOPURINOL [Suspect]
     Active Substance: ALLOPURINOL
     Indication: Hyperuricaemia
     Route: 048
  2. ALLOPURINOL [Suspect]
     Active Substance: ALLOPURINOL
     Indication: Gout

REACTIONS (4)
  - Anti-neutrophil cytoplasmic antibody positive vasculitis [Unknown]
  - Pneumonia [Unknown]
  - Pulmonary renal syndrome [Unknown]
  - Vasculitis [Unknown]
